FAERS Safety Report 8274351-7 (Version None)
Quarter: 2012Q2

REPORT INFORMATION
  Report Type: 
  Country: None (occurrence: None)
  Receive Date: 20120409
  Receipt Date: 20120323
  Transmission Date: 20120825
  Serious: Yes (Death)
  Sender: FDA-Public Use
  Company Number: TPA2012A01402

PATIENT
  Age: 70 Year
  Sex: Male

DRUGS (16)
  1. LAXOBERON (SODIUM PICOSULFATE) [Concomitant]
  2. ENALAPRIL MALEATE [Concomitant]
  3. DIAGLICO (GLICLAZIDE) [Concomitant]
  4. GLIMICRON (GLICLAZIDE) [Concomitant]
  5. ASPIRIN [Concomitant]
  6. CARVEDILOL [Concomitant]
  7. PARIET (RAEPRAZOLE SODIUM) [Concomitant]
  8. WARFARIN SODIUM [Concomitant]
  9. MEXITIL [Concomitant]
  10. FEBURIC (FEBUXOSTAT) [Suspect]
     Indication: HYPERURICAEMIA
     Dosage: 10 MG (10 MG, ONCE EVERY OTHER DAY)
     Route: 048
     Dates: start: 20110901, end: 20120306
  11. TAMSLON (TAMSULOSIN HYDROCHLORIDE) [Concomitant]
  12. ALOSENN (ACHILLEA MILLEFOLIUM, SENNA ALEXANDRINA LEAF, SENNA ALEXANDRI [Concomitant]
  13. ZOLPIDEM TARTRATE [Concomitant]
  14. LANIRAPID (METILDIGOXIN) [Concomitant]
  15. LASIX [Concomitant]
  16. CRESTOR [Concomitant]

REACTIONS (6)
  - BLOOD PRESSURE DECREASED [None]
  - LOSS OF CONSCIOUSNESS [None]
  - CARDIAC FAILURE CHRONIC [None]
  - FALL [None]
  - CONDITION AGGRAVATED [None]
  - VENTRICULAR ARRHYTHMIA [None]
